FAERS Safety Report 7715867-9 (Version None)
Quarter: 2011Q3

REPORT INFORMATION
  Report Type: 
  Country: None (occurrence: None)
  Receive Date: 20110829
  Receipt Date: 20110829
  Transmission Date: 20111222
  Serious: Yes (Life-Threatening, Hospitalization, Disabling, Other)
  Sender: FDA-Public Use
  Company Number: None

PATIENT
  Age: 26 Year
  Sex: Female
  Weight: 74.842 kg

DRUGS (1)
  1. METRONIDAZOLE [Suspect]
     Indication: VAGINITIS BACTERIAL
     Dosage: 500 MG
     Route: 048
     Dates: start: 20110816, end: 20110823

REACTIONS (12)
  - VISUAL ACUITY REDUCED [None]
  - OEDEMA PERIPHERAL [None]
  - OEDEMA MOUTH [None]
  - GENERALISED ERYTHEMA [None]
  - PERIPHERAL COLDNESS [None]
  - CHEST PAIN [None]
  - URTICARIA [None]
  - BODY TEMPERATURE INCREASED [None]
  - LIP SWELLING [None]
  - SWELLING FACE [None]
  - OESOPHAGEAL OEDEMA [None]
  - POOR PERIPHERAL CIRCULATION [None]
